FAERS Safety Report 6236415-9 (Version None)
Quarter: 2009Q2

REPORT INFORMATION
  Report Type: 
  Country: None (occurrence: None)
  Receive Date: 20090619
  Receipt Date: 20090608
  Transmission Date: 20091009
  Serious: Yes (Death, Hospitalization)
  Sender: FDA-Public Use
  Company Number: US-ELI_LILLY_AND_COMPANY-US200906002129

PATIENT
  Sex: Male

DRUGS (8)
  1. ZYPREXA [Suspect]
     Dosage: 20 MG, DAILY (1/D)
  2. ZYPREXA [Interacting]
     Dosage: 20 MG, EACH MORNING
     Dates: start: 20020101
  3. ZYPREXA [Interacting]
     Dosage: 20 MG, EACH EVENING
     Dates: start: 20020101
  4. LUVOX [Concomitant]
     Dosage: 100 MG, EACH MORNING
     Dates: start: 20020101
  5. LUVOX [Concomitant]
     Dosage: 50 MG, EACH EVENING
     Dates: start: 20020101
  6. SYNTHROID [Concomitant]
     Dosage: 0.075 UG, UNK
  7. MINOCIN [Concomitant]
     Dosage: 50 MG, EACH MORNING
  8. ATIVAN [Concomitant]
     Dosage: UNK, AS NEEDED

REACTIONS (7)
  - CONVULSION [None]
  - DRUG INEFFECTIVE [None]
  - DRUG INTERACTION [None]
  - DRUG TOXICITY [None]
  - HOSPITALISATION [None]
  - OVERDOSE [None]
  - PSYCHOTIC BEHAVIOUR [None]
